FAERS Safety Report 7995187-8 (Version None)
Quarter: 2011Q4

REPORT INFORMATION
  Report Type: 
  Country: None (occurrence: None)
  Receive Date: 20111220
  Receipt Date: 20111121
  Transmission Date: 20120403
  Serious: No
  Sender: FDA-Public Use
  Company Number: US-MYLANLABS-2011S1014136

PATIENT
  Age: 78 Year
  Sex: Male
  Weight: 80.74 kg

DRUGS (3)
  1. NIFEDIPINE [Suspect]
     Indication: BLOOD PRESSURE INCREASED
     Route: 048
     Dates: start: 20110402, end: 20110403
  2. SULINDAC [Concomitant]
     Dosage: PRN
  3. RENVELA [Concomitant]
     Dosage: WITH MEALS

REACTIONS (4)
  - DYSPNOEA [None]
  - DRUG INEFFECTIVE [None]
  - DYSPHAGIA [None]
  - OEDEMA PERIPHERAL [None]
